FAERS Safety Report 18755332 (Version 1)
Quarter: 2021Q1

REPORT INFORMATION
  Report Type: Spontaneous
  Country: US (occurrence: US)
  Receive Date: 20210115
  Receipt Date: 20210115
  Transmission Date: 20210419
  Serious: Yes (Other)
  Sender: FDA-Public Use
  Company Number: None

PATIENT
  Age: 69 Year
  Sex: Female
  Weight: 57.15 kg

DRUGS (10)
  1. ALBUTEROL SULFATE. [Concomitant]
     Active Substance: ALBUTEROL SULFATE
  2. FASENRA [Suspect]
     Active Substance: BENRALIZUMAB
     Indication: ASTHMA
     Dosage: ?          QUANTITY:6 SYRINGES;OTHER FREQUENCY:3 TIMES A MONTH;OTHER ROUTE:INJECTED SUBCUTANEOUSLY?
     Dates: start: 20210111
  3. NEOMYCIN. [Concomitant]
     Active Substance: NEOMYCIN
  4. SPIRIVA RESPIMAT [Concomitant]
     Active Substance: TIOTROPIUM BROMIDE
  5. XOLAIR [Suspect]
     Active Substance: OMALIZUMAB
  6. LEVOTHYROXINE. [Concomitant]
     Active Substance: LEVOTHYROXINE
  7. BUDESONIDE?FORMOTEROL [Concomitant]
     Active Substance: BUDESONIDE\FORMOTEROL
  8. DUPIXENT [Concomitant]
     Active Substance: DUPILUMAB
  9. EPINEPHRINE. [Concomitant]
     Active Substance: EPINEPHRINE
  10. PROAIR RESPICLICK [Concomitant]
     Active Substance: ALBUTEROL SULFATE

REACTIONS (2)
  - Peripheral swelling [None]
  - Arthralgia [None]

NARRATIVE: CASE EVENT DATE: 20210111
